FAERS Safety Report 13396737 (Version 1)
Quarter: 2017Q2

REPORT INFORMATION
  Report Type: Spontaneous
  Country: US (occurrence: US)
  Receive Date: 20170403
  Receipt Date: 20170403
  Transmission Date: 20170830
  Serious: Yes (Hospitalization, Other)
  Sender: FDA-Public Use
  Company Number: US-VALIDUS PHARMACEUTICALS LLC-US-2017VAL000431

PATIENT

DRUGS (1)
  1. BUMEX [Suspect]
     Active Substance: BUMETANIDE
     Indication: CARDIAC FAILURE
     Dosage: 0.5 MG, QD
     Route: 048
     Dates: start: 20120304

REACTIONS (17)
  - Asthenia [Unknown]
  - Laceration [Unknown]
  - Confusional state [Unknown]
  - Chills [Unknown]
  - Renal impairment [Unknown]
  - Mental status changes [Not Recovered/Not Resolved]
  - Cardiac failure acute [Recovered/Resolved]
  - Pain [Unknown]
  - Blood creatinine increased [Unknown]
  - Weight increased [Unknown]
  - Hepatic encephalopathy [Unknown]
  - Dyspnoea [Unknown]
  - Haematoma [Unknown]
  - Swelling [Unknown]
  - Fall [Not Recovered/Not Resolved]
  - Musculoskeletal pain [Unknown]
  - Swelling face [Unknown]

NARRATIVE: CASE EVENT DATE: 20170104
